FAERS Safety Report 17686442 (Version 1)
Quarter: 2020Q2

REPORT INFORMATION
  Report Type: Spontaneous
  Country: US (occurrence: US)
  Receive Date: 20200420
  Receipt Date: 20200420
  Transmission Date: 20200714
  Serious: Yes (Hospitalization)
  Sender: FDA-Public Use
  Company Number: US-ANIPHARMA-2020-US-007172

PATIENT
  Age: 67 Year
  Sex: Male

DRUGS (7)
  1. LOVASTATIN. [Concomitant]
     Active Substance: LOVASTATIN
  2. METOPROLOL. [Suspect]
     Active Substance: METOPROLOL
     Indication: HYPERTENSION
     Route: 048
  3. DOXAZOSIN [Suspect]
     Active Substance: DOXAZOSIN MESYLATE
     Indication: HYPERTENSION
     Route: 048
  4. WARFARIN [Suspect]
     Active Substance: WARFARIN
     Indication: DEEP VEIN THROMBOSIS
  5. SEVELAMER [Concomitant]
     Active Substance: SEVELAMER
  6. AMITRIPTYLINE (NON-SPECIFIC) [Suspect]
     Active Substance: AMITRIPTYLINE
     Indication: PRODUCT USED FOR UNKNOWN INDICATION
  7. NIFEDIPINE. [Suspect]
     Active Substance: NIFEDIPINE
     Indication: HYPERTENSION
     Route: 048

REACTIONS (5)
  - Fall [Recovered/Resolved]
  - Hallucination [Recovered/Resolved]
  - Rhabdomyolysis [Recovered/Resolved]
  - International normalised ratio increased [Unknown]
  - Hyperkalaemia [Recovered/Resolved]
